FAERS Safety Report 6377670-4 (Version None)
Quarter: 2009Q3

REPORT INFORMATION
  Report Type: 
  Country: None (occurrence: None)
  Receive Date: 20090925
  Receipt Date: 20090914
  Transmission Date: 20100115
  Serious: Yes (Other)
  Sender: FDA-Public Use
  Company Number: CHPA2009US18589

PATIENT
  Age: 60 Year
  Sex: Female
  Weight: 136.5 kg

DRUGS (2)
  1. PRIVATE LABEL (NCH) [Suspect]
     Indication: SMOKING CESSATION THERAPY
     Dosage: 14 MG, QD
     Route: 062
     Dates: start: 20060101, end: 20060101
  2. LASIX [Concomitant]
     Indication: RENAL FAILURE
     Dosage: 80 MG, BID
     Route: 048

REACTIONS (3)
  - DRUG INEFFECTIVE [None]
  - EMPHYSEMA [None]
  - INAPPROPRIATE SCHEDULE OF DRUG ADMINISTRATION [None]
